FAERS Safety Report 5314562-3 (Version None)
Quarter: 2007Q2

REPORT INFORMATION
  Report Type: 
  Country: None (occurrence: None)
  Receive Date: 20070425
  Receipt Date: 20070410
  Transmission Date: 20071010
  Serious: Yes (Hospitalization, Other)
  Sender: FDA-Public Use
  Company Number: SPI200700172

PATIENT
  Age: 77 Year
  Sex: Female
  Weight: 58.5 kg

DRUGS (2)
  1. AMITIZA [Suspect]
     Dosage: 24 MCG, ORAL
     Route: 048
     Dates: start: 20070403, end: 20070403
  2. ZELNORM [Suspect]
     Dates: end: 20070402

REACTIONS (1)
  - ACUTE RESPIRATORY DISTRESS SYNDROME [None]
